FAERS Safety Report 8106622-9 (Version None)
Quarter: 2012Q1

REPORT INFORMATION
  Report Type: 
  Country: None (occurrence: None)
  Receive Date: 20120202
  Receipt Date: 20120124
  Transmission Date: 20120608
  Serious: Yes (Hospitalization, Congenital Anomaly, Other)
  Sender: FDA-Public Use
  Company Number: DK-ELI_LILLY_AND_COMPANY-DK201111005250

PATIENT
  Sex: Female
  Weight: 1.3 kg

DRUGS (1)
  1. FLUOXETINE HCL [Suspect]
     Dosage: UNK
     Route: 064
     Dates: start: 20071101, end: 20080618

REACTIONS (15)
  - LOW BIRTH WEIGHT BABY [None]
  - MOTOR DEVELOPMENTAL DELAY [None]
  - MENTAL DISORDER [None]
  - PREMATURE BABY [None]
  - HEAD DEFORMITY [None]
  - VOMITING [None]
  - CONSTIPATION [None]
  - FOETAL GROWTH RESTRICTION [None]
  - DECREASED APPETITE [None]
  - HYPERMETROPIA [None]
  - GROWTH RETARDATION [None]
  - ATRIAL SEPTAL DEFECT [None]
  - FOETAL EXPOSURE DURING PREGNANCY [None]
  - CARDIAC MURMUR [None]
  - SPEECH DISORDER DEVELOPMENTAL [None]
